FAERS Safety Report 5995105-8 (Version None)
Quarter: 2008Q4

REPORT INFORMATION
  Report Type: 
  Country: None (occurrence: None)
  Receive Date: 20081210
  Receipt Date: 20081127
  Transmission Date: 20090506
  Serious: Yes (Other)
  Sender: FDA-Public Use
  Company Number: DSU-2008-02020

PATIENT
  Sex: Female
  Weight: 136 kg

DRUGS (3)
  1. OLMESARTAN MEDOXOMIL [Suspect]
     Indication: HYPERTENSION
     Dosage: (20 MG), PER ORAL
     Route: 048
  2. MONOPLUS (HYDROCHLOROTHIAZIDE, FOSINOPRIL) (HYDROCHLOROTHIAZIDE, FOSIN [Concomitant]
  3. DIABEX (METFORMIN HYDROCHLORIDE) (TABLET) (METFORMIN HYDROCHLORIDE) [Concomitant]

REACTIONS (15)
  - ALANINE AMINOTRANSFERASE INCREASED [None]
  - BLOOD ALBUMIN INCREASED [None]
  - BLOOD ALKALINE PHOSPHATASE INCREASED [None]
  - BLOOD CHOLESTEROL INCREASED [None]
  - BLOOD CREATININE INCREASED [None]
  - BLOOD GLUCOSE INCREASED [None]
  - BLOOD TRIGLYCERIDES INCREASED [None]
  - BLOOD UREA INCREASED [None]
  - BLOOD URIC ACID INCREASED [None]
  - GAMMA-GLUTAMYLTRANSFERASE INCREASED [None]
  - GLOMERULAR FILTRATION RATE INCREASED [None]
  - HYPONATRAEMIA [None]
  - PROTEIN TOTAL INCREASED [None]
  - SURGERY [None]
  - VOMITING [None]
